FAERS Safety Report 8817455 (Version 3)
Quarter: 2013Q1

REPORT INFORMATION
  Report Type: Spontaneous
  Country: DE (occurrence: DE)
  Receive Date: 20121001
  Receipt Date: 20130206
  Transmission Date: 20140127
  Serious: Yes (Hospitalization)
  Sender: FDA-Public Use
  Company Number: DE-BAYER-2012-099633

PATIENT
  Age: 54 Year
  Sex: Female
  Weight: 53 kg

DRUGS (2)
  1. CIPROBAY [Suspect]
     Indication: DIVERTICULITIS
     Dosage: UNK
     Route: 048
     Dates: start: 201106
  2. CIPROBAY [Suspect]
     Indication: DIVERTICULITIS
     Dosage: UNK
     Route: 048
     Dates: start: 201111

REACTIONS (4)
  - Bone pain [Not Recovered/Not Resolved]
  - Groin pain [Not Recovered/Not Resolved]
  - Musculoskeletal pain [Not Recovered/Not Resolved]
  - Pain in extremity [Not Recovered/Not Resolved]
